FAERS Safety Report 21296090 (Version 1)
Quarter: 2022Q3

REPORT INFORMATION
  Report Type: Spontaneous
  Country: US (occurrence: US)
  Receive Date: 20220906
  Receipt Date: 20220906
  Transmission Date: 20221026
  Serious: No
  Sender: FDA-Public Use
  Company Number: US-JNJFOC-20220854989

PATIENT
  Age: 20 Year
  Sex: Female

DRUGS (6)
  1. ZYRTEC [Suspect]
     Active Substance: CETIRIZINE HYDROCHLORIDE
     Indication: Hypersensitivity
     Route: 065
     Dates: start: 2022
  2. PEPCID [Suspect]
     Active Substance: FAMOTIDINE
     Indication: Hypersensitivity
     Route: 065
     Dates: start: 2022
  3. ALLEGRA [Concomitant]
     Active Substance: FEXOFENADINE HYDROCHLORIDE
     Indication: Hypersensitivity
     Route: 065
     Dates: start: 2022
  4. COMIRNATY [Concomitant]
     Active Substance: TOZINAMERAN
     Indication: Product used for unknown indication
     Dosage: 2ND PBCV DOSE
     Route: 065
     Dates: start: 20210611
  5. COMIRNATY [Concomitant]
     Active Substance: TOZINAMERAN
     Dosage: 1ST PBCV BOOSTER DOSE
     Route: 065
     Dates: start: 20220604
  6. EPIPEN [Concomitant]
     Active Substance: EPINEPHRINE
     Indication: Respiratory arrest
     Route: 065
     Dates: start: 2022

REACTIONS (1)
  - Product use in unapproved indication [Unknown]

NARRATIVE: CASE EVENT DATE: 20220101
